FAERS Safety Report 9605792 (Version 1)
Quarter: 2013Q4

REPORT INFORMATION
  Report Type: Spontaneous
  Country: US (occurrence: US)
  Receive Date: 20131008
  Receipt Date: 20131008
  Transmission Date: 20140711
  Serious: No
  Sender: FDA-Public Use
  Company Number: US-AMGEN-USASP2013061506

PATIENT
  Age: 59 Year
  Sex: Male
  Weight: 97 kg

DRUGS (3)
  1. XGEVA [Suspect]
     Indication: PRODUCT USED FOR UNKNOWN INDICATION
     Dosage: 120 MG, Q4WK
     Route: 058
     Dates: start: 20130425
  2. ABRAXANE                           /01116001/ [Concomitant]
     Indication: CHEMOTHERAPY
     Dosage: 165 MG, BID
     Route: 042
     Dates: start: 20130504
  3. CARBOPLATIN [Concomitant]
     Indication: CHEMOTHERAPY
     Dosage: 600 MG, BID
     Route: 042
     Dates: start: 20130504

REACTIONS (1)
  - Hypophosphataemia [Not Recovered/Not Resolved]
